FAERS Safety Report 5745605-0 (Version None)
Quarter: 2008Q2

REPORT INFORMATION
  Report Type: 
  Country: None (occurrence: None)
  Receive Date: 20080521
  Receipt Date: 20080513
  Transmission Date: 20081010
  Serious: Yes (Hospitalization)
  Sender: FDA-Public Use
  Company Number: US-PFIZER INC-2006129202

PATIENT
  Sex: Male
  Weight: 59 kg

DRUGS (8)
  1. SU-011,248 [Suspect]
     Indication: RENAL CELL CARCINOMA
     Route: 048
     Dates: start: 20051230, end: 20061119
  2. OXYCODONE HCL [Concomitant]
     Route: 048
  3. OXYCODONE HCL [Concomitant]
     Route: 048
  4. SIMVASTATIN [Concomitant]
     Indication: HYPERCHOLESTEROLAEMIA
     Route: 048
     Dates: start: 20060209
  5. DOCUSATE [Concomitant]
     Route: 048
     Dates: start: 20061018
  6. MAGNESIUM OXIDE [Concomitant]
     Dosage: TEXT:1 TAB
     Route: 048
     Dates: start: 20061018
  7. MILK OF MAGNESIA [Concomitant]
     Route: 048
     Dates: start: 20061018
  8. LACTULOSE [Concomitant]
     Route: 048
     Dates: start: 20060828

REACTIONS (2)
  - ANAEMIA [None]
  - SEPSIS [None]
